FAERS Safety Report 4663593-5 (Version None)
Quarter: 2005Q2

REPORT INFORMATION
  Report Type: 
  Country: None (occurrence: None)
  Receive Date: 20050517
  Receipt Date: 20050425
  Transmission Date: 20051028
  Serious: Yes (Hospitalization)
  Sender: FDA-Public Use
  Company Number: GB-ROCHE-402753

PATIENT
  Age: 71 Year
  Sex: Female
  Weight: 96.5 kg

DRUGS (9)
  1. XENICAL [Suspect]
     Indication: OBESITY
     Route: 048
     Dates: start: 20050222
  2. AMITRIPTYLINE [Concomitant]
  3. ATORVASTATIN CALCIUM [Concomitant]
  4. LANSOPRAZOLE [Concomitant]
     Dosage: ONE EACH MORNING.
  5. MELOXICAM [Concomitant]
  6. PARACETAMOL [Concomitant]
  7. RAMIPRIL [Concomitant]
  8. SALBUTAMOL AEROSOL [Concomitant]
  9. SENNA [Concomitant]
     Dosage: TAKE ONE OR TWO AT NIGHT.

REACTIONS (4)
  - CARBUNCLE [None]
  - FURUNCLE [None]
  - PERIANAL ABSCESS [None]
  - STAPHYLOCOCCAL INFECTION [None]
